FAERS Safety Report 16284919 (Version 3)
Quarter: 2019Q2

REPORT INFORMATION
  Report Type: Report from Study
  Country: None (occurrence: GR)
  Receive Date: 20190508
  Receipt Date: 20190516
  Transmission Date: 20190711
  Serious: Yes (Hospitalization)
  Sender: FDA-Public Use
  Company Number: GR-ABBVIE-19S-066-2772449-00

PATIENT
  Age: 53 Year
  Sex: Female

DRUGS (5)
  1. DUODOPA [Suspect]
     Active Substance: CARBIDOPA\LEVODOPA
     Dosage: MORNING DOSE:7.0ML; CONTINUOUS RATE:2.7ML/H; EXTRA DOSE:1.7ML
     Route: 050
     Dates: start: 201905
  2. DUODOPA [Suspect]
     Active Substance: CARBIDOPA\LEVODOPA
     Indication: PARKINSON^S DISEASE
     Dosage: MD:7.5ML; CR2.7ML/H; ED:1.7ML
     Route: 050
     Dates: start: 20160208, end: 20190513
  3. SEROPIN [Concomitant]
     Indication: COMPULSIONS
     Route: 048
  4. XANAX [Concomitant]
     Active Substance: ALPRAZOLAM
     Indication: DEPRESSION
     Route: 048
  5. MINITRAN [Concomitant]
     Active Substance: NITROGLYCERIN
     Indication: DEPRESSION
     Dosage: (25+4) MILLIGRAMS
     Route: 048

REACTIONS (2)
  - Fall [Recovered/Resolved]
  - Hip fracture [Recovering/Resolving]

NARRATIVE: CASE EVENT DATE: 20190505
